FAERS Safety Report 12121615 (Version 2)
Quarter: 2016Q1

REPORT INFORMATION
  Report Type: Spontaneous
  Country: RO (occurrence: RO)
  Receive Date: 20160226
  Receipt Date: 20160301
  Transmission Date: 20160526
  Serious: Yes (Hospitalization)
  Sender: FDA-Public Use
  Company Number: RO-SA-2016SA033832

PATIENT
  Age: 70 Year
  Sex: Male

DRUGS (2)
  1. TOUJEO [Suspect]
     Active Substance: INSULIN GLARGINE
     Indication: TYPE 2 DIABETES MELLITUS
     Route: 058
     Dates: start: 201511
  2. SOLOSTAR [Concomitant]
     Active Substance: DEVICE
     Indication: TYPE 2 DIABETES MELLITUS
     Route: 058
     Dates: start: 201511

REACTIONS (4)
  - Urinary retention [Unknown]
  - Blood glucose increased [Not Recovered/Not Resolved]
  - Haemorrhagic anaemia [Unknown]
  - Haematuria [Unknown]

NARRATIVE: CASE EVENT DATE: 201511
